FAERS Safety Report 9319799 (Version 1)
Quarter: 2013Q2

REPORT INFORMATION
  Report Type: Spontaneous
  Country: SE (occurrence: SE)
  Receive Date: 20130530
  Receipt Date: 20130530
  Transmission Date: 20140414
  Serious: Yes (Hospitalization, Disabling)
  Sender: FDA-Public Use
  Company Number: SE-GLAXOSMITHKLINE-B0895452A

PATIENT
  Sex: Male

DRUGS (4)
  1. SEROXAT [Suspect]
     Indication: PRODUCT USED FOR UNKNOWN INDICATION
     Route: 048
     Dates: start: 1995
  2. INDERAL [Concomitant]
     Indication: MUSCLE SPASMS
  3. XANOR [Concomitant]
     Indication: PANIC ATTACK
  4. DIKLOFENAK [Concomitant]
     Indication: MUSCLE SPASMS

REACTIONS (41)
  - Haemorrhagic diathesis [Unknown]
  - Anger [Unknown]
  - Acne [Unknown]
  - Vision blurred [Unknown]
  - Contusion [Unknown]
  - Confusional state [Unknown]
  - Diarrhoea [Unknown]
  - Dizziness [Unknown]
  - Vision blurred [Unknown]
  - Fatigue [Unknown]
  - Feeling abnormal [Unknown]
  - Derealisation [Unknown]
  - Hyperacusis [Unknown]
  - Indifference [Unknown]
  - Influenza like illness [Unknown]
  - Insomnia [Unknown]
  - Irritability [Unknown]
  - Photophobia [Unknown]
  - Libido decreased [Unknown]
  - Anxiety [Unknown]
  - Weight increased [Unknown]
  - Weight decreased [Unknown]
  - Tinnitus [Unknown]
  - Hyperhidrosis [Unknown]
  - Sebaceous glands overactivity [Unknown]
  - Rosacea [Unknown]
  - Restlessness [Unknown]
  - Restless legs syndrome [Unknown]
  - Panic attack [Unknown]
  - Palpitations [Unknown]
  - Nightmare [Unknown]
  - Nausea [Unknown]
  - Muscle spasms [Unknown]
  - Memory impairment [Unknown]
  - Mood swings [Unknown]
  - Disturbance in attention [Unknown]
  - Mania [Unknown]
  - Chloasma [Unknown]
  - Dyshidrotic eczema [Unknown]
  - Blood pressure increased [Unknown]
  - Headache [Unknown]
